FAERS Safety Report 5337436-0 (Version None)
Quarter: 2007Q2

REPORT INFORMATION
  Report Type: 
  Country: None (occurrence: None)
  Receive Date: 20070309
  Receipt Date: 20060925
  Transmission Date: 20071010
  Serious: Yes (Hospitalization, Disabling)
  Sender: FDA-Public Use
  Company Number: US200608002013

PATIENT
  Age: 66 Year
  Sex: Male
  Weight: 90.7 kg

DRUGS (6)
  1. GEMCITABINE HCL [Suspect]
     Indication: PANCREATIC CARCINOMA
     Dosage: INTRAVENOUS
     Route: 042
     Dates: start: 20060201, end: 20060802
  2. LASIX [Concomitant]
  3. LEXAPRO /USA/ (ESCITALOPRAM) [Concomitant]
  4. INSULIN HUMULIN 70/30 (INSULIN HUMAN, INSULIN HUMAN INJECTION, ISOPHAN [Concomitant]
  5. VITAMIN B12 [Concomitant]
  6. AMBIEN [Concomitant]

REACTIONS (1)
  - HAEMOLYTIC URAEMIC SYNDROME [None]
